FAERS Safety Report 14078384 (Version 3)
Quarter: 2017Q4

REPORT INFORMATION
  Report Type: Spontaneous
  Country: US (occurrence: US)
  Receive Date: 20171012
  Receipt Date: 20171201
  Transmission Date: 20180321
  Serious: No
  Sender: FDA-Public Use
  Company Number: US-PFIZER INC-2017268831

PATIENT
  Age: 68 Year
  Sex: Female
  Weight: 102 kg

DRUGS (5)
  1. IBRANCE [Suspect]
     Active Substance: PALBOCICLIB
     Dosage: 125 MG, 1X/DAY (ONCE A DAY FOR 21 DAYS)
     Route: 048
     Dates: start: 2017, end: 2017
  2. IBRANCE [Suspect]
     Active Substance: PALBOCICLIB
     Indication: BREAST CANCER STAGE IV
     Dosage: 125 MG, CYCLIC (125 MG; TAKE ONCE DAILY FOR 21DAYS, THEN 7 DAYS OFF)
     Route: 048
     Dates: start: 20170616, end: 2017
  3. IBRANCE [Suspect]
     Active Substance: PALBOCICLIB
     Dosage: 125 MG, CYCLIC (TAKE ONCE DAILY FOR 21DAYS, THEN 7 DAYS OFF)
     Route: 048
     Dates: start: 20170810, end: 20170831
  4. FASLODEX [Concomitant]
     Active Substance: FULVESTRANT
     Indication: NEOPLASM MALIGNANT
     Dosage: UNK UNK, MONTHLY (ONCE A MONTH)(5CC IN EACH BUTTOCK)
     Route: 030
  5. IBRANCE [Suspect]
     Active Substance: PALBOCICLIB
     Dosage: 125 MG, CYCLIC( TAKE 1 CAPSULE (125 MG TOTAL) BY MOUTH WITH FOOD. TAKE ONCE DAILY FOR 21 DAYS, THEN)
     Route: 048
     Dates: start: 20171127, end: 20171127

REACTIONS (1)
  - White blood cell count decreased [Unknown]

NARRATIVE: CASE EVENT DATE: 2017
